FAERS Safety Report 4369031-4 (Version None)
Quarter: 2004Q2

REPORT INFORMATION
  Report Type: 
  Country: None (occurrence: None)
  Receive Date: 20040527
  Receipt Date: 20040518
  Transmission Date: 20050107
  Serious: Yes (Hospitalization)
  Sender: FDA-Public Use
  Company Number: CERZ-10560

PATIENT
  Age: 28 Year
  Sex: Female
  Weight: 98.7 kg

DRUGS (1)
  1. CEREZYME [Suspect]
     Indication: GAUCHER'S DISEASE
     Dosage: 4800 UNITS Q2WKS IV
     Route: 042
     Dates: start: 20030408

REACTIONS (1)
  - CHOLELITHIASIS [None]
